FAERS Safety Report 11410851 (Version 2)
Quarter: 2015Q3

REPORT INFORMATION
  Report Type: Spontaneous
  Country: US (occurrence: US)
  Receive Date: 20150821
  Receipt Date: 20150903
  Transmission Date: 20151125
  Serious: No
  Sender: FDA-Public Use
  Company Number: US-ELI_LILLY_AND_COMPANY-US200912001534

PATIENT
  Sex: Male
  Weight: 95.24 kg

DRUGS (3)
  1. HUMALOG [Suspect]
     Active Substance: INSULIN LISPRO
     Dosage: 20 U, UNK
     Dates: start: 20091204, end: 20091204
  2. HUMULIN N [Suspect]
     Active Substance: INSULIN HUMAN
     Dosage: 75 U, DAILY (1/D)
     Dates: start: 1996
  3. HUMALOG [Suspect]
     Active Substance: INSULIN LISPRO
     Dosage: 200 U, DAILY (1/D)
     Dates: start: 1996, end: 200911

REACTIONS (8)
  - Blood glucose increased [Not Recovered/Not Resolved]
  - Drug dose omission [Not Recovered/Not Resolved]
  - Malaise [Not Recovered/Not Resolved]
  - Diabetic retinopathy [Unknown]
  - Cataract [Unknown]
  - Drug prescribing error [Recovered/Resolved]
  - Visual impairment [Not Recovered/Not Resolved]
  - Intraocular pressure test abnormal [Unknown]

NARRATIVE: CASE EVENT DATE: 2004
